FAERS Safety Report 13630767 (Version 2)
Quarter: 2017Q2

REPORT INFORMATION
  Report Type: Spontaneous
  Country: US (occurrence: US)
  Receive Date: 20170608
  Receipt Date: 20170615
  Transmission Date: 20170830
  Serious: Yes (Death)
  Sender: FDA-Public Use
  Company Number: US-OTSUKA-2017_012557

PATIENT
  Age: 92 Year
  Sex: Male

DRUGS (2)
  1. SAMSCA [Suspect]
     Active Substance: TOLVAPTAN
     Indication: INAPPROPRIATE ANTIDIURETIC HORMONE SECRETION
     Dosage: 15 MG, QD
     Route: 048
     Dates: start: 20170524
  2. SAMSCA [Suspect]
     Active Substance: TOLVAPTAN
     Indication: HYPONATRAEMIA
     Dosage: 7.5 MG, UNK (TWICE WEEKLY AND PRN)
     Route: 048
     Dates: start: 20170504

REACTIONS (3)
  - Inappropriate schedule of drug administration [Unknown]
  - Underdose [Unknown]
  - Death [Fatal]

NARRATIVE: CASE EVENT DATE: 20170504
